FAERS Safety Report 5321621-8 (Version None)
Quarter: 2007Q1

REPORT INFORMATION
  Report Type: 
  Country: None (occurrence: None)
  Receive Date: 20070220
  Receipt Date: 20070103
  Transmission Date: 20070707
  Serious: No
  Sender: FDA-Public Use
  Company Number: TPA2006A02241

PATIENT
  Age: 74 Year
  Sex: Female

DRUGS (6)
  1. ROZEREM [Suspect]
     Indication: INSOMNIA
     Dosage: 8 MG, QHS, PER ORAL
     Route: 048
     Dates: start: 20061110, end: 20061112
  2. PAXIL [Concomitant]
  3. LEVOXYL [Concomitant]
  4. ASPIRIN TAB [Concomitant]
  5. PRILOSEC [Concomitant]
  6. PREMARIN [Concomitant]

REACTIONS (4)
  - DRUG INEFFECTIVE [None]
  - ENDOCRINE OPHTHALMOPATHY [None]
  - RASH MORBILLIFORM [None]
  - URTICARIA [None]
